FAERS Safety Report 8166231-2 (Version None)
Quarter: 2012Q1

REPORT INFORMATION
  Report Type: 
  Country: None (occurrence: None)
  Receive Date: 20120227
  Receipt Date: 20110511
  Transmission Date: 20120608
  Serious: No
  Sender: FDA-Public Use
  Company Number: US-MYLANLABS-2011S1010046

PATIENT
  Age: 16 Year
  Sex: Male

DRUGS (2)
  1. AMNESTEEM [Suspect]
     Indication: ACNE
     Route: 048
     Dates: start: 20110321, end: 20110412
  2. CLARITIN /00917501/ [Concomitant]

REACTIONS (3)
  - DEPRESSION [None]
  - PERSONALITY CHANGE [None]
  - ANXIETY [None]
